FAERS Safety Report 5573645-3 (Version None)
Quarter: 2007Q4

REPORT INFORMATION
  Report Type: 
  Country: None (occurrence: None)
  Receive Date: 20071226
  Receipt Date: 20071213
  Transmission Date: 20080405
  Serious: Yes (Hospitalization)
  Sender: FDA-Public Use
  Company Number: GR-AMGEN-US257668

PATIENT
  Age: 59 Year
  Sex: Male

DRUGS (5)
  1. ENBREL [Suspect]
     Indication: RHEUMATOID ARTHRITIS
     Route: 058
     Dates: start: 20061004, end: 20071101
  2. VIAGRA [Concomitant]
     Dosage: UNSPECIFIED
     Route: 048
     Dates: start: 20061001
  3. LIPITOR [Concomitant]
     Dosage: 10MG DAILY
     Route: 048
     Dates: start: 20070301
  4. METHOTREXATE [Concomitant]
     Dosage: 12.5MG WEEKLY
     Route: 048
     Dates: start: 20070525
  5. PREZOLON [Concomitant]

REACTIONS (2)
  - BONE PAIN [None]
  - SMALL CELL LUNG CANCER METASTATIC [None]
